FAERS Safety Report 5412082-9 (Version None)
Quarter: 2007Q3

REPORT INFORMATION
  Report Type: 
  Country: None (occurrence: None)
  Receive Date: 20070713
  Receipt Date: 20070327
  Transmission Date: 20080115
  Serious: No
  Sender: FDA-Public Use
  Company Number: 2007SP001109

PATIENT
  Age: 70 Year
  Sex: Female
  Weight: 62.5964 kg

DRUGS (6)
  1. LUNESTA [Suspect]
     Indication: INSOMNIA
     Dosage: 1MG;1X;ORAL, 2MG;ORAL, 3MG;ORAL
     Route: 048
     Dates: start: 20060101, end: 20060101
  2. LUNESTA [Suspect]
     Indication: INSOMNIA
     Dosage: 1MG;1X;ORAL, 2MG;ORAL, 3MG;ORAL
     Route: 048
     Dates: start: 20070201, end: 20070301
  3. LUNESTA [Suspect]
     Indication: INSOMNIA
     Dosage: 1MG;1X;ORAL, 2MG;ORAL, 3MG;ORAL
     Route: 048
     Dates: start: 20070301
  4. ABILIFY [Concomitant]
  5. LISINOPRIL [Concomitant]
  6. PANTOPRAZOLE SODIUM [Concomitant]

REACTIONS (4)
  - DRY MOUTH [None]
  - DYSGEUSIA [None]
  - MIDDLE INSOMNIA [None]
  - SOMNOLENCE [None]
